FAERS Safety Report 7521367-1 (Version None)
Quarter: 2011Q2

REPORT INFORMATION
  Report Type: 
  Country: None (occurrence: None)
  Receive Date: 20110603
  Receipt Date: 20110525
  Transmission Date: 20111010
  Serious: No
  Sender: FDA-Public Use
  Company Number: US-JNJFOC-20110511677

PATIENT
  Sex: Female
  Weight: 74.84 kg

DRUGS (2)
  1. FENTANYL-100 [Suspect]
     Indication: OSTEOARTHRITIS
     Route: 062
     Dates: start: 20100901
  2. FENTANYL-100 [Suspect]
     Indication: INTERVERTEBRAL DISC DEGENERATION
     Route: 062
     Dates: start: 20100901

REACTIONS (2)
  - PRODUCT ADHESION ISSUE [None]
  - WRONG TECHNIQUE IN DRUG USAGE PROCESS [None]
